FAERS Safety Report 18818561 (Version 3)
Quarter: 2022Q3

REPORT INFORMATION
  Report Type: Spontaneous
  Country: US (occurrence: US)
  Receive Date: 20210201
  Receipt Date: 20220825
  Transmission Date: 20221027
  Serious: Yes (Hospitalization, Other)
  Sender: FDA-Public Use
  Company Number: US-GLAXOSMITHKLINE-USCH2021GSK001635

PATIENT

DRUGS (2)
  1. TERBINAFINE HYDROCHLORIDE [Suspect]
     Active Substance: TERBINAFINE HYDROCHLORIDE
     Indication: Onychomycosis
     Dosage: UNK
  2. CICLOPIROX [Concomitant]
     Active Substance: CICLOPIROX
     Indication: Onychomycosis
     Dosage: UNK

REACTIONS (8)
  - Acute generalised exanthematous pustulosis [Unknown]
  - Hepatitis [Recovered/Resolved]
  - Rash [Recovered/Resolved]
  - Hepatic enzyme increased [Recovered/Resolved]
  - Epidermal necrosis [Unknown]
  - Eczema [Unknown]
  - Skin oedema [Unknown]
  - Extravasation blood [Unknown]
